FAERS Safety Report 4509147-2 (Version None)
Quarter: 2005Q1

REPORT INFORMATION
  Report Type: 
  Country: None (occurrence: None)
  Receive Date: 20041025
  Receipt Date: 20040806
  Transmission Date: 20050727
  Serious: Yes (Other)
  Sender: FDA-Public Use
  Company Number: US-JNJFOC-20040802796

PATIENT
  Age: 71 Year
  Sex: Male
  Weight: 68.0396 kg

DRUGS (9)
  1. INFLIXIMAB (INFLIXIMAB, RECOMBINANT) LYOPHILIZED POWDER [Suspect]
     Indication: RHEUMATOID ARTHRITIS
     Dosage: INTRAVENOUS
     Route: 042
     Dates: start: 20010525
  2. PREDNISONE [Concomitant]
  3. LIPITOR [Concomitant]
  4. TRILISATE ( ) TRILISATE [Concomitant]
  5. COUMADIN [Concomitant]
  6. ZESTORETIC [Concomitant]
  7. DIPYRIDAMOLE [Concomitant]
  8. ACEBUTALOL (ACEBUTOLOL HYDROCHLORIDE) [Concomitant]
  9. INSULIN [Concomitant]

REACTIONS (1)
  - BASAL CELL CARCINOMA [None]
